FAERS Safety Report 21771156 (Version 1)
Quarter: 2022Q4

REPORT INFORMATION
  Report Type: Report from Study
  Country: US (occurrence: US)
  Receive Date: 20221223
  Receipt Date: 20221223
  Transmission Date: 20230113
  Serious: No
  Sender: FDA-Public Use
  Company Number: US-ABBVIE-4242389

PATIENT
  Age: 23 Year
  Sex: Male

DRUGS (3)
  1. HUMIRA [Suspect]
     Active Substance: ADALIMUMAB
     Indication: Crohn^s disease
     Dosage: FORM STRENGTH: 40 MILLIGRAM?MAINTENANCE DOSE STARTING DAY 29
     Route: 058
     Dates: start: 20221204
  2. HUMIRA [Suspect]
     Active Substance: ADALIMUMAB
     Dosage: DAY 1, TWO 80 MG PEN
     Route: 058
     Dates: start: 20211105
  3. HUMIRA [Suspect]
     Active Substance: ADALIMUMAB
     Dosage: DAY 15,ONE 80 MG PEN
     Route: 058
     Dates: start: 20211120

REACTIONS (4)
  - Respiratory symptom [Recovered/Resolved]
  - Fatigue [Unknown]
  - Arthralgia [Unknown]
  - Asthenia [Unknown]

NARRATIVE: CASE EVENT DATE: 20221101
